FAERS Safety Report 19206282 (Version 2)
Quarter: 2021Q2

REPORT INFORMATION
  Report Type: Report from Study
  Country: GB (occurrence: GB)
  Receive Date: 20210503
  Receipt Date: 20210506
  Transmission Date: 20210717
  Serious: Yes (Death, Hospitalization)
  Sender: FDA-Public Use
  Company Number: NVSC2021GB044794

PATIENT
  Age: 35 Year
  Sex: Female

DRUGS (3)
  1. SANDOSTATIN LAR DEPOT [Suspect]
     Active Substance: OCTREOTIDE ACETATE
     Indication: NEUROENDOCRINE TUMOUR
     Dosage: 30 MG, Q3W, (EVERY 21 DAYS)
     Route: 030
     Dates: start: 201709
  2. SANDOSTATIN LAR DEPOT [Suspect]
     Active Substance: OCTREOTIDE ACETATE
  3. SANDOSTATIN LAR DEPOT [Suspect]
     Active Substance: OCTREOTIDE ACETATE

REACTIONS (9)
  - Inappropriate schedule of product administration [Unknown]
  - Sneezing [Unknown]
  - Back injury [Not Recovered/Not Resolved]
  - Death [Fatal]
  - Asthenia [Unknown]
  - Rotator cuff syndrome [Unknown]
  - Back pain [Not Recovered/Not Resolved]
  - Heart valve incompetence [Unknown]
  - Syncope [Unknown]

NARRATIVE: CASE EVENT DATE: 20210215
